FAERS Safety Report 5165026-1 (Version None)
Quarter: 2006Q4

REPORT INFORMATION
  Report Type: 
  Country: None (occurrence: None)
  Receive Date: 20061124
  Receipt Date: 20061110
  Transmission Date: 20070319
  Serious: Yes (Death, Hospitalization)
  Sender: FDA-Public Use
  Company Number: 2006126009

PATIENT
  Age: 80 Year
  Sex: Male
  Weight: 43.7 kg

DRUGS (4)
  1. ZYVOX [Suspect]
     Indication: PNEUMONIA STAPHYLOCOCCAL
     Dosage: 1200 MG (600 MG, 2 IN 1 D); INTRAVENOUS
     Route: 042
     Dates: start: 20060819, end: 20061005
  2. ZYVOX [Suspect]
     Indication: SEPSIS
     Dosage: 1200 MG (600 MG, 2 IN 1 D); INTRAVENOUS
     Route: 042
     Dates: start: 20060819, end: 20061005
  3. OMEPRAZOLE [Concomitant]
  4. SYMMETREL [Concomitant]

REACTIONS (8)
  - CONDITION AGGRAVATED [None]
  - DISEASE RECURRENCE [None]
  - DISSEMINATED INTRAVASCULAR COAGULATION [None]
  - HAEMODIALYSIS [None]
  - PLATELET COUNT DECREASED [None]
  - PNEUMONIA [None]
  - PNEUMONIA STAPHYLOCOCCAL [None]
  - SEPSIS [None]
